FAERS Safety Report 17099884 (Version 7)
Quarter: 2021Q3

REPORT INFORMATION
  Report Type: Report from Study
  Country: ES (occurrence: ES)
  Receive Date: 20191202
  Receipt Date: 20210811
  Transmission Date: 20211014
  Serious: Yes (Other)
  Sender: FDA-Public Use
  Company Number: ES-ROCHE-2321521

PATIENT
  Age: 57 Year
  Sex: Male
  Weight: 83 kg

DRUGS (47)
  1. VALSARTAN. [Concomitant]
     Active Substance: VALSARTAN
     Indication: HYPERTENSION
     Route: 048
     Dates: start: 20171010
  2. LEVOFLOXACINO [Concomitant]
     Active Substance: LEVOFLOXACIN
     Indication: UPPER RESPIRATORY TRACT INFECTION
     Route: 048
     Dates: start: 20190106, end: 20190113
  3. PREDNISONA [Concomitant]
     Active Substance: PREDNISONE
     Route: 048
     Dates: start: 20191123, end: 20200122
  4. METFORMINA [Concomitant]
     Active Substance: METFORMIN HYDROCHLORIDE
     Indication: DIABETES MELLITUS
     Route: 048
     Dates: start: 20190923
  5. LEVOFLOXACINO [Concomitant]
     Active Substance: LEVOFLOXACIN
     Indication: NEUTROPHILIC DERMATOSIS
     Route: 048
     Dates: start: 20180328
  6. POLARAMINE [Concomitant]
     Active Substance: DEXCHLORPHENIRAMINE MALEATE
     Indication: ANAPHYLACTIC REACTION
     Route: 065
     Dates: start: 20190402, end: 20190402
  7. RANITIDINE. [Concomitant]
     Active Substance: RANITIDINE
     Indication: ANAPHYLACTIC REACTION
     Route: 065
     Dates: start: 20190402, end: 20190402
  8. ACIDO CLAVULANICO [Concomitant]
     Indication: RASH
     Route: 048
     Dates: start: 20190930, end: 20191007
  9. TELMISARTAN. [Concomitant]
     Active Substance: TELMISARTAN
     Indication: HYPERTENSION
     Route: 048
     Dates: start: 20200210, end: 20200401
  10. ROCALTROL [Concomitant]
     Active Substance: CALCITRIOL
     Indication: HYPERTENSION
     Route: 048
     Dates: start: 20200210, end: 20200401
  11. LIPOCOMB [Concomitant]
     Active Substance: EZETIMIBE\ROSUVASTATIN ZINC
     Route: 048
     Dates: start: 20200210
  12. TRAJENTA [Concomitant]
     Active Substance: LINAGLIPTIN
     Indication: DIABETES MELLITUS
     Route: 048
  13. PREDNISONA [Concomitant]
     Active Substance: PREDNISONE
     Route: 048
     Dates: start: 20191118, end: 20191122
  14. CLINDAMICINA [Concomitant]
     Active Substance: CLINDAMYCIN HYDROCHLORIDE
     Indication: LYMPHOEDEMA
     Route: 048
     Dates: start: 20190106, end: 20190113
  15. CLOVATE (SPAIN) [Concomitant]
     Indication: RASH
     Route: 061
     Dates: start: 20190930, end: 20191007
  16. CAPTOPRIL. [Concomitant]
     Active Substance: CAPTOPRIL
     Indication: HYPERTENSION
     Route: 048
     Dates: start: 20200319, end: 20200319
  17. AMLODIPINO [Concomitant]
     Active Substance: AMLODIPINE BESYLATE
     Indication: HYPERTENSION
     Route: 048
     Dates: start: 20200319, end: 20200610
  18. PHOSPHATE [Concomitant]
     Active Substance: UNSPECIFIED INGREDIENT
     Indication: BLOOD PHOSPHORUS
     Route: 048
     Dates: start: 20180607
  19. TRIMETHOPRIM. [Concomitant]
     Active Substance: TRIMETHOPRIM
     Indication: DIARRHOEA
     Route: 048
     Dates: start: 20190508
  20. PANTOPRAZOLE [Concomitant]
     Active Substance: PANTOPRAZOLE
     Indication: GASTRIC ULCER
     Route: 048
     Dates: start: 20200210
  21. DAPAGLIFLOZINA [Concomitant]
     Active Substance: DAPAGLIFLOZIN
     Indication: DIABETES MELLITUS
     Route: 048
     Dates: start: 20210630
  22. PLACEBO [Suspect]
     Active Substance: UNSPECIFIED INGREDIENT
     Indication: MALIGNANT MELANOMA
     Dosage: DATE OF MOST RECENT DOSE OF BLINDED ATEZOLIZUMAB PRIOR TO AE ONSET: 07/JUN/2018
     Route: 042
     Dates: start: 20170914
  23. PREDNISONA [Concomitant]
     Active Substance: PREDNISONE
     Route: 048
     Dates: start: 20191015, end: 20191021
  24. PREDNISONA [Concomitant]
     Active Substance: PREDNISONE
     Route: 048
     Dates: start: 20191101, end: 20191107
  25. TRIMETHOPRIM. [Concomitant]
     Active Substance: TRIMETHOPRIM
     Indication: PROPHYLAXIS
     Route: 048
     Dates: start: 20191029
  26. AMOXICILLIN. [Concomitant]
     Active Substance: AMOXICILLIN
     Indication: RASH
     Route: 048
     Dates: start: 20190930, end: 20191007
  27. TRIMETOPRIMA [Concomitant]
     Route: 048
     Dates: start: 20191029, end: 20200304
  28. TELMISARTAN. [Concomitant]
     Active Substance: TELMISARTAN
     Route: 048
     Dates: start: 20200728
  29. METAMIZOLE [Concomitant]
     Active Substance: METAMIZOLE
     Indication: OBSTRUCTIVE PANCREATITIS
     Route: 030
     Dates: start: 20201227, end: 20210104
  30. COBIMETINIB. [Suspect]
     Active Substance: COBIMETINIB
     Indication: MALIGNANT MELANOMA
     Dosage: DATE OF MOST RECENT DOSE OF COBIMETINIB PRIOR TO THE ONSET OF FIRST OCCURRENCE OF NEPHRITIS: 21/JUN/
     Route: 048
     Dates: start: 20170818
  31. SULFAMETHOXAZOLE [Concomitant]
     Active Substance: SULFAMETHOXAZOLE
     Indication: DIARRHOEA
     Route: 048
     Dates: start: 20190508
  32. VEMURAFENIB. [Suspect]
     Active Substance: VEMURAFENIB
     Indication: MALIGNANT MELANOMA
     Dosage: DATE OF MOST RECENT DOSE OF VEMURAFENIB PRIOR TO THE ONSET OF FIRST OCCURRENCE OF NEPHRITIS: 21/JUN/
     Route: 048
     Dates: start: 20170818
  33. VALSARTAN. [Concomitant]
     Active Substance: VALSARTAN
     Route: 048
     Dates: start: 20200402, end: 20200624
  34. LEVOFLOXACINO [Concomitant]
     Active Substance: LEVOFLOXACIN
     Route: 048
     Dates: start: 20191029
  35. PREDNISONA [Concomitant]
     Active Substance: PREDNISONE
     Route: 048
     Dates: start: 20191113, end: 20191117
  36. URBASON [Concomitant]
     Active Substance: METHYLPREDNISOLONE
     Indication: ANAPHYLACTIC REACTION
     Route: 042
     Dates: start: 20190402, end: 20190402
  37. INSULIN [Concomitant]
     Active Substance: INSULIN NOS
     Indication: BLOOD GLUCOSE INCREASED
     Route: 058
     Dates: start: 20190530
  38. METFORMINA [Concomitant]
     Active Substance: METFORMIN HYDROCHLORIDE
     Route: 048
  39. LERCANIDIPINO [Concomitant]
     Indication: HYPERTENSION
     Route: 048
     Dates: start: 20200611
  40. PREDNISONA [Concomitant]
     Active Substance: PREDNISONE
     Indication: NEUTROPHILIC DERMATOSIS
     Route: 048
     Dates: start: 20180422
  41. PREDNISONA [Concomitant]
     Active Substance: PREDNISONE
     Route: 048
     Dates: start: 20191022, end: 20191028
  42. PREDNISONA [Concomitant]
     Active Substance: PREDNISONE
     Route: 048
     Dates: start: 20191108, end: 20191112
  43. PREDNISONA [Concomitant]
     Active Substance: PREDNISONE
     Route: 048
     Dates: start: 20200123, end: 20200305
  44. IBUPROFENO [Concomitant]
     Active Substance: IBUPROFEN
     Indication: PYREXIA
     Route: 048
     Dates: start: 20190103, end: 20190103
  45. ROSUVASTATINA [Concomitant]
     Active Substance: ROSUVASTATIN
     Indication: HYPERCHOLESTEROLAEMIA
     Route: 048
     Dates: start: 20190213
  46. SULFAMETHOXAZOLE [Concomitant]
     Active Substance: SULFAMETHOXAZOLE
     Indication: PROPHYLAXIS
     Route: 048
     Dates: start: 20191029
  47. TELMISARTAN. [Concomitant]
     Active Substance: TELMISARTAN
     Route: 048
     Dates: start: 20200625, end: 20200727

REACTIONS (4)
  - Nephritis [Recovered/Resolved]
  - Nephritis [Recovered/Resolved]
  - Nephritis [Recovered/Resolved]
  - Chorioretinopathy [Recovering/Resolving]

NARRATIVE: CASE EVENT DATE: 20180301
